FAERS Safety Report 23287424 (Version 1)
Quarter: 2023Q4

REPORT INFORMATION
  Report Type: Spontaneous
  Country: US (occurrence: US)
  Receive Date: 20231212
  Receipt Date: 20231212
  Transmission Date: 20240110
  Serious: Yes (Hospitalization, Other)
  Sender: FDA-Public Use
  Company Number: US-Accord-271986

PATIENT
  Age: 73 Year
  Sex: Female
  Weight: 69.9 kg

DRUGS (6)
  1. AMLODIPINE [Suspect]
     Active Substance: AMLODIPINE BESYLATE
     Indication: Product used for unknown indication
     Dosage: INGESTION OF 70MG AMLODIPINE
     Route: 048
  2. ATORVASTATIN [Concomitant]
     Active Substance: ATORVASTATIN
  3. APIXABAN [Concomitant]
     Active Substance: APIXABAN
  4. ESCITALOPRAM [Concomitant]
     Active Substance: ESCITALOPRAM OXALATE
  5. ANASTROZOLE [Concomitant]
     Active Substance: ANASTROZOLE
  6. MEMANTINE [Concomitant]
     Active Substance: MEMANTINE

REACTIONS (2)
  - Accidental overdose [Recovering/Resolving]
  - Haemodynamic instability [Recovering/Resolving]
